FAERS Safety Report 26168962 (Version 1)
Quarter: 2025Q4

REPORT INFORMATION
  Report Type: Spontaneous
  Country: US (occurrence: None)
  Receive Date: 20251216
  Receipt Date: 20251216
  Transmission Date: 20260118
  Serious: No
  Sender: FDA-CTU
  Company Number: None

PATIENT
  Age: 83 Year
  Sex: Female

DRUGS (1)
  1. ADEMPAS [Suspect]
     Active Substance: RIOCIGUAT
     Indication: Pulmonary hypertension
     Dosage: FREQUENCY : 3 TIMES A DAY;
     Route: 048
     Dates: start: 20160913

REACTIONS (5)
  - Fall [None]
  - Arthropathy [None]
  - Arthritis [None]
  - Osteomyelitis [None]
  - Cellulitis [None]

NARRATIVE: CASE EVENT DATE: 20251209
